FAERS Safety Report 5146447-X (Version None)
Quarter: 2006Q4

REPORT INFORMATION
  Report Type: 
  Country: None (occurrence: None)
  Receive Date: 20061102
  Receipt Date: 20061019
  Transmission Date: 20070319
  Serious: Yes (Death)
  Sender: FDA-Public Use
  Company Number: 2004094919

PATIENT
  Age: 38 Year
  Sex: Male
  Weight: 81.6475 kg

DRUGS (12)
  1. NEURONTIN [Suspect]
  2. PROPOXYPHENE HCL [Concomitant]
  3. NAPRONTAG FLEX (CARISOPRODOL, NAPROXEN) [Concomitant]
  4. MEPROBAMATE [Concomitant]
  5. ACETAMINOPHEN [Concomitant]
  6. DIPHENHYDRAMINE HCL [Concomitant]
  7. ZOLPIDEM TARTRATE [Concomitant]
  8. ALPRAZOLAM [Concomitant]
  9. TEMAZEPAM [Concomitant]
  10. PAROXETINE [Concomitant]
  11. HYDROCODONE (HYDROCODONE) [Concomitant]
  12. DIHYDROCODEINE (DIHYDROCODEINE) [Concomitant]

REACTIONS (4)
  - COMPLETED SUICIDE [None]
  - DRUG SCREEN POSITIVE [None]
  - GUN SHOT WOUND [None]
  - INTENTIONAL SELF-INJURY [None]
